FAERS Safety Report 5048692-0 (Version None)
Quarter: 2006Q3

REPORT INFORMATION
  Report Type: 
  Country: None (occurrence: None)
  Receive Date: 20060712
  Receipt Date: 20060704
  Transmission Date: 20061208
  Serious: Yes (Hospitalization)
  Sender: FDA-Public Use
  Company Number: PHHO2006CL10853

PATIENT
  Age: 52 Year
  Sex: Female

DRUGS (4)
  1. ZELMAC / HTF 919A [Suspect]
     Dosage: 6 MG, BID
     Route: 048
  2. CLINDAMYCIN [Concomitant]
  3. METRONIDAZOLE [Concomitant]
  4. RANITIDINE [Concomitant]

REACTIONS (3)
  - INFECTION [None]
  - LARGE INTESTINE PERFORATION [None]
  - PAIN [None]
